FAERS Safety Report 21749663 (Version 1)
Quarter: 2022Q4

REPORT INFORMATION
  Report Type: Spontaneous
  Country: BE (occurrence: BE)
  Receive Date: 20221219
  Receipt Date: 20221219
  Transmission Date: 20230112
  Serious: Yes (Other)
  Sender: FDA-Public Use
  Company Number: BE-NALPROPION PHARMACEUTICALS INC.-BE-2022CUR024062

PATIENT
  Age: 27 Year
  Sex: Male

DRUGS (3)
  1. BUPROPION HYDROCHLORIDE\NALTREXONE HYDROCHLORIDE [Suspect]
     Active Substance: BUPROPION HYDROCHLORIDE\NALTREXONE HYDROCHLORIDE
     Indication: Obesity
     Dosage: STRENGTH 8/90 MG, UNKNOWN DOSE AND FREQUENCY
     Route: 048
     Dates: start: 20210426, end: 20210726
  2. REMICADE [Concomitant]
     Active Substance: INFLIXIMAB
     Indication: Product used for unknown indication
     Dosage: UNK
  3. BECLOMETHASONE DIPROPIONATE\FORMOTEROL FUMARATE [Concomitant]
     Active Substance: BECLOMETHASONE DIPROPIONATE\FORMOTEROL FUMARATE
     Indication: Product used for unknown indication
     Dosage: UNK

REACTIONS (2)
  - Epilepsy [Recovered/Resolved]
  - Petit mal epilepsy [Recovered/Resolved]
